FAERS Safety Report 26200600 (Version 1)
Quarter: 2025Q4

REPORT INFORMATION
  Report Type: Spontaneous
  Country: EU (occurrence: EU)
  Receive Date: 20251225
  Receipt Date: 20251225
  Transmission Date: 20260117
  Serious: Yes (Life-Threatening, Hospitalization)
  Sender: BAXTER
  Company Number: None

PATIENT
  Age: 91 Year
  Sex: Male

DRUGS (3)
  1. DEXTROSE [Suspect]
     Active Substance: DEXTROSE MONOHYDRATE
     Indication: Emergency care
     Dosage: UNK
     Route: 042
     Dates: start: 20251125
  2. INSULIN ASPART [Suspect]
     Active Substance: INSULIN ASPART
     Indication: Acute kidney injury
     Dosage: 100 [IU] (100 UNITS/ML, INJECTABLE SOLUTION IN VIAL)
     Route: 042
     Dates: start: 20251125
  3. INSULIN ASPART [Suspect]
     Active Substance: INSULIN ASPART
     Indication: Hyperkalaemia

REACTIONS (1)
  - Hypoglycaemia [Not Recovered/Not Resolved]

NARRATIVE: CASE EVENT DATE: 20251126
